FAERS Safety Report 10338993 (Version 6)
Quarter: 2015Q2

REPORT INFORMATION
  Report Type: Report from Study
  Country: US (occurrence: US)
  Receive Date: 20140724
  Receipt Date: 20150624
  Transmission Date: 20150821
  Serious: Yes (Death, Other)
  Sender: FDA-Public Use
  Company Number: US-SA-2014SA076561

PATIENT
  Age: 47 Year
  Sex: Male
  Weight: 129.2 kg

DRUGS (1)
  1. AUBAGIO [Suspect]
     Active Substance: TERIFLUNOMIDE
     Indication: MULTIPLE SCLEROSIS
     Route: 048
     Dates: start: 20140512, end: 20150614

REACTIONS (4)
  - Weight decreased [Unknown]
  - Oropharyngeal pain [Unknown]
  - Hepatic cancer [Fatal]
  - Rectal cancer [Fatal]
